FAERS Safety Report 13896959 (Version 1)
Quarter: 2017Q3

REPORT INFORMATION
  Report Type: Spontaneous
  Country: US (occurrence: US)
  Receive Date: 20170823
  Receipt Date: 20170823
  Transmission Date: 20171127
  Serious: No
  Sender: FDA-Public Use
  Company Number: US-ASTRAZENECA-2017SE82213

PATIENT
  Age: 2690 Week
  Sex: Female
  Weight: 72.1 kg

DRUGS (2)
  1. FASLODEX [Suspect]
     Active Substance: FULVESTRANT
     Indication: METASTASES TO BONE
     Route: 030
     Dates: start: 20170731
  2. FASLODEX [Suspect]
     Active Substance: FULVESTRANT
     Indication: BREAST CANCER
     Route: 030
     Dates: start: 20170731

REACTIONS (12)
  - Nasal congestion [Recovering/Resolving]
  - Chest discomfort [Recovering/Resolving]
  - Upper-airway cough syndrome [Recovering/Resolving]
  - Ear pain [Recovered/Resolved]
  - Muscular weakness [Recovering/Resolving]
  - Rash [Recovering/Resolving]
  - Chills [Recovering/Resolving]
  - Urine odour abnormal [Recovering/Resolving]
  - Sensation of foreign body [Recovering/Resolving]
  - Heart rate increased [Recovering/Resolving]
  - Cough [Recovering/Resolving]
  - Influenza like illness [Recovering/Resolving]

NARRATIVE: CASE EVENT DATE: 20170731
